FAERS Safety Report 4615730-6 (Version None)
Quarter: 2005Q1

REPORT INFORMATION
  Report Type: 
  Country: None (occurrence: None)
  Receive Date: 20050317
  Receipt Date: 20050302
  Transmission Date: 20050727
  Serious: Yes (Hospitalization)
  Sender: FDA-Public Use
  Company Number: 2005BI004720

PATIENT
  Age: 64 Year
  Sex: Female
  Weight: 181.4388 kg

DRUGS (1)
  1. AVONEX [Suspect]
     Indication: MULTIPLE SCLEROSIS
     Dosage: 30 UG; QW; I M
     Route: 030
     Dates: start: 20010406

REACTIONS (2)
  - COUGH [None]
  - WHEEZING [None]
